FAERS Safety Report 18632235 (Version 1)
Quarter: 2020Q4

REPORT INFORMATION
  Report Type: Spontaneous
  Country: HR (occurrence: HR)
  Receive Date: 20201218
  Receipt Date: 20201218
  Transmission Date: 20210114
  Serious: Yes (Other)
  Sender: FDA-Public Use
  Company Number: HR-TEVA-2020-HR-1858953

PATIENT
  Age: 17 Year
  Sex: Female

DRUGS (4)
  1. MODITEN [Suspect]
     Active Substance: FLUPHENAZINE
     Dosage: UNKNOWN QUANTITY
     Route: 048
     Dates: start: 20201102, end: 20201102
  2. KVENTIAX [Suspect]
     Active Substance: QUETIAPINE FUMARATE
     Dosage: 10 QUENTIAXA
     Route: 048
     Dates: start: 20201102, end: 20201102
  3. OXAZEPAM. [Suspect]
     Active Substance: OXAZEPAM
     Dosage: BOARD
     Route: 048
     Dates: start: 20201102, end: 20201102
  4. RIVOTRIL [Suspect]
     Active Substance: CLONAZEPAM
     Dosage: SHE DRANK A BOTTLE, HUH MG
     Route: 048
     Dates: start: 20201102, end: 20201102

REACTIONS (3)
  - Intentional overdose [Unknown]
  - Sopor [Unknown]
  - Suicide attempt [Unknown]

NARRATIVE: CASE EVENT DATE: 20201102
